FAERS Safety Report 4334032-9 (Version None)
Quarter: 2004Q2

REPORT INFORMATION
  Report Type: 
  Country: None (occurrence: None)
  Receive Date: 20040402
  Receipt Date: 20040318
  Transmission Date: 20050107
  Serious: Yes (Death, Hospitalization)
  Sender: FDA-Public Use
  Company Number: M04-341-088

PATIENT
  Age: 67 Year
  Sex: Male

DRUGS (4)
  1. VELCADE [Suspect]
     Indication: MULTIPLE MYELOMA
     Dosage: 1.0 MG/M2:
  2. FUROSEMIDE [Concomitant]
  3. MAZSIDE (DYAZIDE) [Concomitant]
  4. WARFARIN SODIUM [Concomitant]

REACTIONS (10)
  - ATRIAL FIBRILLATION [None]
  - ATRIOVENTRICULAR BLOCK COMPLETE [None]
  - BLOOD POTASSIUM DECREASED [None]
  - BRADYCARDIA [None]
  - CARDIAC ARREST [None]
  - DEHYDRATION [None]
  - DIZZINESS [None]
  - INTERNATIONAL NORMALISED RATIO ABNORMAL [None]
  - RENAL AMYLOIDOSIS [None]
  - RENAL FAILURE ACUTE [None]
